FAERS Safety Report 21772018 (Version 1)
Quarter: 2022Q4

REPORT INFORMATION
  Report Type: Spontaneous
  Country: CA (occurrence: CA)
  Receive Date: 20221223
  Receipt Date: 20221223
  Transmission Date: 20230113
  Serious: Yes (Other)
  Sender: FDA-Public Use
  Company Number: CA-AMGEN-CANSP2022219227

PATIENT

DRUGS (2)
  1. BEVACIZUMAB [Suspect]
     Active Substance: BEVACIZUMAB
     Indication: Neovascular age-related macular degeneration
     Dosage: UNK
  2. BEVACIZUMAB [Suspect]
     Active Substance: BEVACIZUMAB
     Indication: Off label use

REACTIONS (8)
  - Retinal oedema [Not Recovered/Not Resolved]
  - Subretinal fluid [Not Recovered/Not Resolved]
  - Retinal haemorrhage [Unknown]
  - Choroidal neovascularisation [Unknown]
  - Visual acuity reduced [Not Recovered/Not Resolved]
  - Retinal fovea disorder [Recovered/Resolved]
  - Drug ineffective for unapproved indication [Unknown]
  - Off label use [Unknown]
